FAERS Safety Report 20773168 (Version 2)
Quarter: 2022Q2

REPORT INFORMATION
  Report Type: Spontaneous
  Country: US (occurrence: US)
  Receive Date: 20220502
  Receipt Date: 20220525
  Transmission Date: 20220721
  Serious: Yes (Life-Threatening)
  Sender: FDA-Public Use
  Company Number: US-APOTEX-2022AP006574

PATIENT
  Sex: Female

DRUGS (1)
  1. FENTANYL TRANSDERMAL SYSTEM [Suspect]
     Active Substance: FENTANYL
     Indication: Complex regional pain syndrome
     Dosage: 1 PATCH EVERY 3 DAY
     Route: 062
     Dates: start: 202204

REACTIONS (8)
  - Hypersensitivity [Unknown]
  - Pruritus [Unknown]
  - Intentional overdose [Unknown]
  - Product substitution issue [Unknown]
  - Product adhesion issue [Unknown]
  - Manufacturing issue [Unknown]
  - Product use issue [Unknown]
  - Drug ineffective [Unknown]

NARRATIVE: CASE EVENT DATE: 20220401
